FAERS Safety Report 7180450-3 (Version None)
Quarter: 2010Q4

REPORT INFORMATION
  Report Type: 
  Country: None (occurrence: None)
  Receive Date: 20101221
  Receipt Date: 20101208
  Transmission Date: 20110411
  Serious: Yes (Other)
  Sender: FDA-Public Use
  Company Number: US-CELGENEUS-163-21880-10121387

PATIENT
  Sex: Male

DRUGS (4)
  1. REVLIMID [Suspect]
     Indication: MULTIPLE MYELOMA
     Route: 048
     Dates: start: 20100601
  2. REVLIMID [Suspect]
     Route: 048
     Dates: start: 20101111, end: 20101201
  3. DEXAMETHASONE [Concomitant]
     Route: 065
  4. MEGACE [Concomitant]
     Route: 065

REACTIONS (3)
  - ANAEMIA [None]
  - HYPERGLYCAEMIA [None]
  - PLATELET COUNT DECREASED [None]
